FAERS Safety Report 11358264 (Version 1)
Quarter: 2015Q3

REPORT INFORMATION
  Report Type: Spontaneous
  Country: US (occurrence: US)
  Receive Date: 20150803
  Receipt Date: 20150803
  Transmission Date: 20151125
  Serious: No
  Sender: FDA-Public Use
  Company Number: US-ELI_LILLY_AND_COMPANY-US200803001805

PATIENT
  Age: 16 Year
  Sex: Male

DRUGS (1)
  1. STRATTERA [Suspect]
     Active Substance: ATOMOXETINE HYDROCHLORIDE
     Indication: ATTENTION DEFICIT/HYPERACTIVITY DISORDER
     Dosage: 25 MG, UNK
     Dates: start: 200703

REACTIONS (9)
  - Treatment noncompliance [Unknown]
  - Educational problem [Unknown]
  - Drug ineffective [Unknown]
  - Bladder disorder [Unknown]
  - Abdominal discomfort [Unknown]
  - Nausea [Unknown]
  - Micturition disorder [Unknown]
  - Vomiting [Unknown]
  - Abdominal pain upper [Unknown]
